FAERS Safety Report 9277575 (Version 1)
Quarter: 2013Q2

REPORT INFORMATION
  Report Type: Spontaneous
  Country: US (occurrence: US)
  Receive Date: 20130508
  Receipt Date: 20130508
  Transmission Date: 20140414
  Serious: Yes (Hospitalization)
  Sender: FDA-Public Use
  Company Number: US-JNJFOC-20130414163

PATIENT
  Age: 72 Year
  Sex: Male

DRUGS (8)
  1. RISPERIDONE [Suspect]
     Indication: DELIRIUM
     Route: 065
  2. HALOPERIDOL [Suspect]
     Indication: DELIRIUM
     Route: 065
  3. TRAZODONE [Suspect]
     Indication: DELIRIUM
     Route: 065
  4. OLANZAPINE [Suspect]
     Indication: DELIRIUM
     Route: 065
  5. MELATONIN [Suspect]
     Indication: DELIRIUM
     Route: 065
  6. ZOLPIDEM [Suspect]
     Indication: DELIRIUM
     Route: 065
  7. LORAZEPAM [Suspect]
     Indication: DELIRIUM
     Route: 065
  8. DIVALPROEX SODIUM [Suspect]
     Indication: DELIRIUM
     Route: 065

REACTIONS (1)
  - Drug ineffective for unapproved indication [Unknown]
